FAERS Safety Report 12076060 (Version 2)
Quarter: 2016Q1

REPORT INFORMATION
  Report Type: Spontaneous
  Country: NL (occurrence: NL)
  Receive Date: 20160215
  Receipt Date: 20160222
  Transmission Date: 20160526
  Serious: Yes (Hospitalization)
  Sender: FDA-Public Use
  Company Number: NL-HOSPIRA-3163274

PATIENT
  Age: 82 Year
  Sex: Female
  Weight: 58 kg

DRUGS (5)
  1. GADOLINIUM [Suspect]
     Active Substance: GADOLINIUM
     Indication: NUCLEAR MAGNETIC RESONANCE IMAGING
     Dosage: EXTRA INFO: 1X WITH MRI?ENDDATE: 3-2015
     Route: 042
     Dates: start: 20150327
  2. GEMCITABINE HYDROCHLORIDE. [Suspect]
     Active Substance: GEMCITABINE HYDROCHLORIDE
     Indication: NON-SMALL CELL LUNG CANCER
     Dosage: EXTRA INFO: 2000 MG 2X ON DAY 1 AND 8 ENDDATE: 3-2015
     Route: 042
     Dates: start: 20150302
  3. CARBOPLATIN. [Suspect]
     Active Substance: CARBOPLATIN
     Indication: NON-SMALL CELL LUNG CANCER
     Dosage: EXTRA INFO: 400 MG ENDDATE: 3-2015
     Route: 042
     Dates: start: 20150302
  4. PARACETAMOL [Concomitant]
     Active Substance: ACETAMINOPHEN
     Indication: PRODUCT USED FOR UNKNOWN INDICATION
     Dosage: EXTRA INFO: AS NEEDED 2 EACH
     Route: 048
  5. NIFEDIPINE. [Concomitant]
     Active Substance: NIFEDIPINE
     Indication: PRODUCT USED FOR UNKNOWN INDICATION
     Dosage: 1 TIME PER DAY 1 EACH
     Route: 048
     Dates: start: 2010

REACTIONS (4)
  - Drug interaction [Unknown]
  - Stevens-Johnson syndrome [Unknown]
  - Toxic skin eruption [Recovered/Resolved]
  - Malaise [Recovered/Resolved]

NARRATIVE: CASE EVENT DATE: 20150327
